FAERS Safety Report 7703714-0 (Version None)
Quarter: 2011Q3

REPORT INFORMATION
  Report Type: 
  Country: None (occurrence: None)
  Receive Date: 20110823
  Receipt Date: 20110812
  Transmission Date: 20111222
  Serious: Yes (Death, Hospitalization, Other)
  Sender: FDA-Public Use
  Company Number: US-BAXTER-2011BH023965

PATIENT
  Age: 80 Year
  Sex: Female

DRUGS (3)
  1. DIANEAL [Suspect]
     Indication: PERITONEAL DIALYSIS
     Route: 033
     Dates: start: 20100101, end: 20110721
  2. DIANEAL [Suspect]
     Indication: PERITONEAL DIALYSIS
     Route: 033
     Dates: end: 20110721
  3. EXTRANEAL [Suspect]
     Indication: PERITONEAL DIALYSIS
     Route: 033
     Dates: start: 20100101, end: 20110721

REACTIONS (7)
  - WHITE BLOOD CELL COUNT INCREASED [None]
  - SEPSIS [None]
  - DYSPNOEA [None]
  - ASTHENIA [None]
  - DEATH [None]
  - BREAST CELLULITIS [None]
  - HYPOTENSION [None]
